FAERS Safety Report 17070622 (Version 3)
Quarter: 2019Q4

REPORT INFORMATION
  Report Type: Spontaneous
  Country: JP (occurrence: JP)
  Receive Date: 20191125
  Receipt Date: 20191211
  Transmission Date: 20200122
  Serious: Yes (Other)
  Sender: FDA-Public Use
  Company Number: JP-ALLERGAN-1942254US

PATIENT
  Sex: Male

DRUGS (4)
  1. LUCONAC [Concomitant]
     Indication: PRODUCT USED FOR UNKNOWN INDICATION
  2. BOTOX [Suspect]
     Active Substance: ONABOTULINUMTOXINA
     Indication: MUSCLE SPASTICITY
     Dosage: 240 IU, SINGLE
     Route: 030
     Dates: start: 20190822, end: 20190822
  3. MAGNESIUM OXIDE. [Concomitant]
     Active Substance: MAGNESIUM OXIDE
     Indication: PRODUCT USED FOR UNKNOWN INDICATION
     Dosage: 330 MG, TID (AFTER EACH MEAL)
  4. GASCON [Concomitant]
     Active Substance: DIMETHICONE
     Indication: PRODUCT USED FOR UNKNOWN INDICATION
     Dosage: 40 MG, TID (AFTER EACH MEAL)

REACTIONS (4)
  - Musculoskeletal disorder [Not Recovered/Not Resolved]
  - Condition aggravated [Not Recovered/Not Resolved]
  - Incorrect dose administered [Unknown]
  - Joint dislocation [Recovering/Resolving]

NARRATIVE: CASE EVENT DATE: 201908
